FAERS Safety Report 9475815 (Version 2)
Quarter: 2013Q3

REPORT INFORMATION
  Report Type: Spontaneous
  Country: US (occurrence: US)
  Receive Date: 20130826
  Receipt Date: 20130826
  Transmission Date: 20140515
  Serious: No
  Sender: FDA-Public Use
  Company Number: US-PFIZER INC-2012279274

PATIENT
  Age: 36 Year
  Sex: Female
  Weight: 65.76 kg

DRUGS (5)
  1. LYRICA [Suspect]
     Indication: EPILEPSY
     Dosage: 100 MG, 2X/DAY
     Route: 048
     Dates: start: 2011
  2. LYRICA [Suspect]
     Dosage: 150 MG IN THE MORNING AND 200 MG AT NIGHT
     Route: 048
  3. BENADRYL [Concomitant]
     Indication: HYPERSENSITIVITY
     Dosage: UNK
  4. TYLENOL [Concomitant]
     Indication: SLEEP DISORDER
     Dosage: UNK
  5. TYLENOL PM [Concomitant]
     Dosage: UNK

REACTIONS (3)
  - Incorrect dose administered [Unknown]
  - Dry skin [Unknown]
  - Pruritus [Unknown]
